FAERS Safety Report 5317651-2 (Version None)
Quarter: 2007Q2

REPORT INFORMATION
  Report Type: 
  Country: None (occurrence: None)
  Receive Date: 20070507
  Receipt Date: 20070427
  Transmission Date: 20071010
  Serious: Yes (Hospitalization)
  Sender: FDA-Public Use
  Company Number: GB-JNJFOC-20070500137

PATIENT
  Age: 80 Year
  Sex: Male

DRUGS (2)
  1. IBUPROFEN [Suspect]
     Indication: BACK PAIN
     Route: 048
  2. PARACETAMOL [Concomitant]
     Indication: BACK PAIN
     Route: 048

REACTIONS (1)
  - FAECES DISCOLOURED [None]
